FAERS Safety Report 24360960 (Version 1)
Quarter: 2024Q3

REPORT INFORMATION
  Report Type: Spontaneous
  Country: US (occurrence: US)
  Receive Date: 20240925
  Receipt Date: 20240925
  Transmission Date: 20241017
  Serious: Yes (Hospitalization, Other)
  Sender: GLAND PHARMA
  Company Number: US-GLANDPHARMA-US-2024GLNLIT00776

PATIENT
  Sex: Female

DRUGS (1)
  1. CARBOPROST TROMETHAMINE [Suspect]
     Active Substance: CARBOPROST TROMETHAMINE
     Indication: Uterine myoma expulsion
     Route: 065

REACTIONS (7)
  - Vaginal haemorrhage [Recovering/Resolving]
  - Haemoglobin decreased [Recovering/Resolving]
  - Pyrexia [Recovering/Resolving]
  - Uterine tenderness [Recovering/Resolving]
  - Endometritis [Recovering/Resolving]
  - Tachycardia [Recovering/Resolving]
  - Product use in unapproved indication [Unknown]
